FAERS Safety Report 22775619 (Version 3)
Quarter: 2024Q3

REPORT INFORMATION
  Report Type: Spontaneous
  Country: DE (occurrence: DE)
  Receive Date: 20230802
  Receipt Date: 20240730
  Transmission Date: 20241017
  Serious: Yes (Life-Threatening, Hospitalization, Other)
  Sender: AUROBINDO
  Company Number: DE-PFIZER INC-PV202300122044

PATIENT
  Age: 36 Year
  Sex: Male
  Weight: 89 kg

DRUGS (12)
  1. QUETIAPINE [Suspect]
     Active Substance: QUETIAPINE
     Indication: Sleep disorder
     Dosage: UNK
     Route: 065
  2. QUETIAPINE [Suspect]
     Active Substance: QUETIAPINE
     Indication: Pain management
  3. ZOLPIDEM TARTRATE [Suspect]
     Active Substance: ZOLPIDEM TARTRATE
     Indication: Sleep disorder
     Dosage: UNK
     Route: 065
     Dates: start: 20230202
  4. TAVOR (LORAZEPAM) [Suspect]
     Active Substance: LORAZEPAM
     Indication: Product used for unknown indication
     Dosage: UNK
     Route: 065
  5. AMOXICILLIN [Concomitant]
     Active Substance: AMOXICILLIN
     Indication: Product used for unknown indication
     Dosage: UNK
     Route: 065
     Dates: start: 20230223
  6. CYANOCOBALAMIN [Concomitant]
     Active Substance: CYANOCOBALAMIN
     Indication: Product used for unknown indication
     Dosage: UNK
     Route: 065
     Dates: start: 20080915
  7. CHOLECALCIFEROL [Concomitant]
     Active Substance: CHOLECALCIFEROL
     Indication: Product used for unknown indication
     Dosage: UNK
     Route: 065
     Dates: start: 20210809
  8. ENOXAPARIN [Concomitant]
     Active Substance: ENOXAPARIN
     Indication: Product used for unknown indication
     Dosage: UNK
     Route: 065
     Dates: start: 20230116
  9. MELATONIN [Concomitant]
     Active Substance: MELATONIN
     Indication: Product used for unknown indication
     Dosage: UNK
     Route: 065
     Dates: start: 20210115
  10. IRON\MINERALS\VITAMINS [Concomitant]
     Active Substance: IRON\MINERALS\VITAMINS
     Indication: Product used for unknown indication
     Dosage: UNK
     Route: 065
     Dates: start: 20140414
  11. TAZOBACTAM [Concomitant]
     Active Substance: TAZOBACTAM
     Indication: Product used for unknown indication
     Dosage: UNK
     Route: 065
     Dates: start: 20230217
  12. TILIDINE HYDROCHLORIDE [Concomitant]
     Active Substance: TILIDINE HYDROCHLORIDE
     Indication: Product used for unknown indication
     Dosage: UNK
     Route: 065
     Dates: start: 20230104

REACTIONS (7)
  - Suicidal ideation [Unknown]
  - Suicide attempt [Recovered/Resolved]
  - Poisoning [Unknown]
  - Mental impairment [Unknown]
  - Anxiety [Unknown]
  - Agitation [Unknown]
  - Psychiatric decompensation [Unknown]

NARRATIVE: CASE EVENT DATE: 20230224
